FAERS Safety Report 22623301 (Version 1)
Quarter: 2023Q2

REPORT INFORMATION
  Report Type: Report from Study
  Country: ES (occurrence: ES)
  Receive Date: 20230621
  Receipt Date: 20230621
  Transmission Date: 20230721
  Serious: Yes (Hospitalization, Other)
  Sender: FDA-Public Use
  Company Number: ES-SHIRE-SPV1-2011-00775

PATIENT
  Age: 6 Year
  Sex: Male
  Weight: 35 kg

DRUGS (44)
  1. ELAPRASE [Suspect]
     Active Substance: IDURSULFASE
     Indication: Mucopolysaccharidosis II
     Dosage: 0.49 MILLIGRAM/KILOGRAM, 1/WEEK
     Route: 042
     Dates: start: 20070205
  2. ELAPRASE [Suspect]
     Active Substance: IDURSULFASE
     Dosage: 0.43 MILLIGRAM/KILOGRAM, 1/WEEK
     Route: 042
     Dates: start: 20100205
  3. METHYLPHENIDATE [Concomitant]
     Active Substance: METHYLPHENIDATE
     Indication: Attention deficit hyperactivity disorder
     Dosage: 25 MG, 1X/DAY:QD
     Route: 048
     Dates: start: 20091211
  4. METHYLPHENIDATE [Concomitant]
     Active Substance: METHYLPHENIDATE
     Indication: Behaviour disorder
     Dosage: UNK
     Route: 048
     Dates: start: 20130911
  5. DEXCHLORPHENIRAMINE [Concomitant]
     Active Substance: DEXCHLORPHENIRAMINE
     Indication: Premedication
     Dosage: UNK
     Route: 042
     Dates: start: 20070312, end: 20070409
  6. HYDROCORTISONE [Concomitant]
     Active Substance: HYDROCORTISONE
     Indication: Premedication
     Dosage: UNK
     Route: 042
     Dates: start: 20070319, end: 20070409
  7. Alimemazin APL [Concomitant]
     Indication: Sleep disorder
     Dosage: UNK
     Route: 048
     Dates: start: 20080801, end: 20090224
  8. Alimemazin APL [Concomitant]
     Dosage: UNK
     Route: 048
     Dates: start: 20090224, end: 200910
  9. RISPERIDONE [Concomitant]
     Active Substance: RISPERIDONE
     Indication: Nervous system disorder
     Dosage: UNK
     Route: 048
     Dates: start: 20100709
  10. CARBAMAZEPINE [Concomitant]
     Active Substance: CARBAMAZEPINE
     Indication: Epilepsy
     Dosage: UNK
     Route: 048
     Dates: start: 20101022
  11. CLONAZEPAM [Concomitant]
     Active Substance: CLONAZEPAM
     Indication: Sleep disorder
     Dosage: UNK
     Route: 048
     Dates: start: 2013
  12. CLORAZEPATE DIPOTASSIUM [Concomitant]
     Active Substance: CLORAZEPATE DIPOTASSIUM
     Indication: Behaviour disorder
     Dosage: UNK
     Route: 048
     Dates: start: 2013
  13. CLORAZEPATE DIPOTASSIUM [Concomitant]
     Active Substance: CLORAZEPATE DIPOTASSIUM
     Indication: Insomnia
  14. CLORAZEPATE DIPOTASSIUM [Concomitant]
     Active Substance: CLORAZEPATE DIPOTASSIUM
     Indication: Anxiety
     Dosage: UNK
     Route: 048
     Dates: start: 20150806, end: 20150821
  15. CLOXACILLIN [Concomitant]
     Active Substance: CLOXACILLIN
     Indication: Infection
     Dosage: UNK
     Route: 042
     Dates: start: 20150806, end: 20150807
  16. VANCOMYCIN [Concomitant]
     Active Substance: VANCOMYCIN
     Indication: Infection
     Dosage: UNK
     Route: 042
     Dates: start: 20150807, end: 20150821
  17. LEVETIRACETAM [Concomitant]
     Active Substance: LEVETIRACETAM
     Indication: Seizure
     Dosage: UNK
     Route: 048
     Dates: start: 20160331
  18. AMOXICILLIN\CLAVULANATE POTASSIUM [Concomitant]
     Active Substance: AMOXICILLIN\CLAVULANATE POTASSIUM
     Indication: Infection
     Dosage: UNK
     Route: 042
     Dates: start: 20161215, end: 20161225
  19. ALBUTEROL [Concomitant]
     Active Substance: ALBUTEROL
     Indication: Respiratory distress
     Dosage: UNK
     Route: 045
     Dates: start: 20161215, end: 20161223
  20. ALBUTEROL [Concomitant]
     Active Substance: ALBUTEROL
     Indication: Hypoxia
     Dosage: UNK
     Route: 055
     Dates: start: 20171030, end: 20171102
  21. ALBUTEROL [Concomitant]
     Active Substance: ALBUTEROL
     Indication: Respiratory disorder
     Dosage: UNK
     Route: 055
     Dates: start: 20180314, end: 20180314
  22. ALBUTEROL [Concomitant]
     Active Substance: ALBUTEROL
     Dosage: UNK
     Route: 055
     Dates: start: 20180712
  23. CEFAZOLIN SODIUM [Concomitant]
     Active Substance: CEFAZOLIN SODIUM
     Indication: Prophylaxis
     Dosage: UNK
     Route: 042
     Dates: start: 20170111, end: 20170114
  24. GENTAMICIN [Concomitant]
     Active Substance: GENTAMICIN
     Indication: Prophylaxis
     Dosage: UNK
     Route: 042
     Dates: start: 20170111, end: 20170114
  25. ACETAMINOPHEN [Concomitant]
     Active Substance: ACETAMINOPHEN
     Indication: Pain
     Dosage: UNK
     Route: 042
     Dates: start: 20170111, end: 20170114
  26. METAMIZOLE [Concomitant]
     Active Substance: METAMIZOLE
     Indication: Pain
     Dosage: UNK
     Route: 042
     Dates: start: 20170111, end: 20170114
  27. METAMIZOLE [Concomitant]
     Active Substance: METAMIZOLE
     Indication: Pyrexia
     Dosage: UNK
     Route: 048
     Dates: start: 20180122
  28. DEXAMETHASONE [Concomitant]
     Active Substance: DEXAMETHASONE
     Indication: Pain
     Dosage: UNK
     Route: 042
     Dates: start: 20170111, end: 20170114
  29. AMOXICILLIN\CLAVULANIC ACID [Concomitant]
     Active Substance: AMOXICILLIN\CLAVULANIC ACID
     Indication: Pneumonia
     Dosage: UNK
     Route: 048
     Dates: start: 20171030, end: 20171109
  30. AMOXICILLIN\CLAVULANIC ACID [Concomitant]
     Active Substance: AMOXICILLIN\CLAVULANIC ACID
     Indication: Infection
     Dosage: UNK
     Route: 048
     Dates: start: 20180122, end: 20180129
  31. AMOXICILLIN\CLAVULANIC ACID [Concomitant]
     Active Substance: AMOXICILLIN\CLAVULANIC ACID
     Indication: Lower respiratory tract infection
     Dosage: UNK
     Route: 048
     Dates: start: 20180208, end: 20180215
  32. AMOXICILLIN\CLAVULANIC ACID [Concomitant]
     Active Substance: AMOXICILLIN\CLAVULANIC ACID
     Indication: Respiratory tract infection
     Dosage: UNK
     Route: 048
     Dates: start: 20180314, end: 20180321
  33. AMOXICILLIN\CLAVULANIC ACID [Concomitant]
     Active Substance: AMOXICILLIN\CLAVULANIC ACID
     Dosage: UNK
     Route: 048
     Dates: start: 20180702, end: 20180712
  34. OMEPRAZOLE [Concomitant]
     Active Substance: OMEPRAZOLE
     Indication: Abdominal pain upper
     Dosage: UNK
     Route: 048
     Dates: start: 20171030
  35. GABAPENTIN [Concomitant]
     Active Substance: GABAPENTIN
     Indication: Anti-epithelial antibody
     Dosage: UNK
     Route: 048
     Dates: start: 20171030
  36. DIAZEPAM [Concomitant]
     Active Substance: DIAZEPAM
     Indication: Insomnia
     Dosage: UNK
     Route: 048
     Dates: start: 2018
  37. IPRATROPIUM BROMIDE [Concomitant]
     Active Substance: IPRATROPIUM BROMIDE\IPRATROPIUM BROMIDE ANHYDROUS
     Indication: Respiratory disorder
     Dosage: UNK
     Route: 055
     Dates: start: 20180314, end: 20180314
  38. IPRATROPIUM BROMIDE [Concomitant]
     Active Substance: IPRATROPIUM BROMIDE\IPRATROPIUM BROMIDE ANHYDROUS
     Indication: Respiratory distress
     Dosage: UNK
     Route: 055
     Dates: start: 20180605, end: 20180621
  39. BUDESONIDE [Concomitant]
     Active Substance: BUDESONIDE
     Indication: Respiratory distress
     Dosage: UNK
     Route: 055
     Dates: start: 20110605, end: 20180611
  40. CIPROFLOXACIN [Concomitant]
     Active Substance: CIPROFLOXACIN
     Indication: Pneumonia
     Dosage: UNK
     Route: 048
     Dates: start: 20180605, end: 20180611
  41. HODERNAL [Concomitant]
     Indication: Constipation
     Dosage: UNK
     Route: 048
     Dates: start: 20180712
  42. DUPHALAC [Concomitant]
     Active Substance: LACTULOSE
     Indication: Constipation
     Dosage: UNK
     Route: 048
     Dates: start: 2019
  43. ZONISAMIDE [Concomitant]
     Active Substance: ZONISAMIDE
     Indication: Toxicity to various agents
     Dosage: UNK
     Route: 048
     Dates: start: 20190227
  44. LEVOFLOXACIN [Concomitant]
     Active Substance: LEVOFLOXACIN
     Indication: Respiratory disorder
     Dosage: UNK
     Route: 065
     Dates: start: 201906, end: 20190806

REACTIONS (1)
  - Epilepsy [Recovered/Resolved]

NARRATIVE: CASE EVENT DATE: 20100820
